FAERS Safety Report 5739345-1 (Version None)
Quarter: 2008Q2

REPORT INFORMATION
  Report Type: 
  Country: None (occurrence: None)
  Receive Date: 20080512
  Receipt Date: 20071130
  Transmission Date: 20081010
  Serious: Yes (Other)
  Sender: FDA-Public Use
  Company Number: 43316

PATIENT
  Age: 81 Year
  Sex: Female

DRUGS (1)
  1. ACETYLCYSTEINE [Suspect]
     Indication: DRUG THERAPY
     Dosage: DAILY

REACTIONS (3)
  - ERYTHEMA [None]
  - HAEMORRHAGE [None]
  - NAIL DISORDER [None]
